FAERS Safety Report 25276225 (Version 1)
Quarter: 2025Q2

REPORT INFORMATION
  Report Type: Spontaneous
  Country: US (occurrence: US)
  Receive Date: 20250507
  Receipt Date: 20250507
  Transmission Date: 20250716
  Serious: No
  Sender: TARO
  Company Number: US-TARO PHARMACEUTICALS USA INC.-2024TAR02368

PATIENT

DRUGS (1)
  1. METRONIDAZOLE [Suspect]
     Active Substance: METRONIDAZOLE
     Indication: Acne
     Dosage: ABOUT 3 FINGER TIPS TO FACE, ONCE DAILY
     Route: 061
     Dates: start: 202407, end: 2024

REACTIONS (2)
  - Acne [Recovering/Resolving]
  - Erythema [Recovering/Resolving]
